FAERS Safety Report 6758033-6 (Version None)
Quarter: 2010Q2

REPORT INFORMATION
  Report Type: 
  Country: None (occurrence: None)
  Receive Date: 20100607
  Receipt Date: 20100526
  Transmission Date: 20101027
  Serious: Yes (Death, Other)
  Sender: FDA-Public Use
  Company Number: PE-GENZYME-THYM-1001509

PATIENT
  Age: 37 Year
  Sex: Male
  Weight: 55 kg

DRUGS (18)
  1. THYMOGLOBULIN [Suspect]
     Indication: DRUG USE FOR UNKNOWN INDICATION
     Dosage: 275 MG, QD
     Route: 042
     Dates: start: 20100401, end: 20100405
  2. AMIKACIN [Concomitant]
     Indication: DEVICE RELATED INFECTION
     Dosage: UNK
     Route: 065
     Dates: start: 20100329, end: 20100402
  3. AMIKACIN [Concomitant]
     Indication: NEUTROPENIA
  4. VANCOMYCIN [Concomitant]
     Indication: DEVICE RELATED INFECTION
     Dosage: UNK
     Route: 065
     Dates: start: 20100329, end: 20100404
  5. VANCOMYCIN [Concomitant]
     Indication: NEUTROPENIA
  6. VANCOMYCIN [Concomitant]
     Indication: ANTIBIOTIC THERAPY
  7. FLUCONAZOLE [Concomitant]
     Indication: DEVICE RELATED INFECTION
     Dosage: UNK
     Route: 065
     Dates: start: 20100329, end: 20100417
  8. FLUCONAZOLE [Concomitant]
     Indication: NEUTROPENIA
  9. METRONIDAZOLE [Concomitant]
     Indication: DRUG USE FOR UNKNOWN INDICATION
     Dosage: UNK
     Route: 065
     Dates: start: 20100404, end: 20100407
  10. CYCLOSPORINE [Concomitant]
     Indication: APLASTIC ANAEMIA
     Dosage: 275 MG, QD
     Route: 065
     Dates: start: 20100401, end: 20100405
  11. CYCLOSPORINE [Concomitant]
     Dosage: 150 MG, QD
     Route: 065
     Dates: start: 20100411
  12. METHYLPREDNISOLONE [Concomitant]
     Indication: DRUG USE FOR UNKNOWN INDICATION
     Dosage: 5 MG/KG, QD
     Route: 065
     Dates: start: 20100401, end: 20100401
  13. METHYLPREDNISOLONE [Concomitant]
     Dosage: 3 MG/KG, QD
     Route: 065
     Dates: start: 20100402, end: 20100402
  14. METHYLPREDNISOLONE [Concomitant]
     Dosage: 2 MG/KG, QD
     Route: 065
     Dates: start: 20100403, end: 20100403
  15. METHYLPREDNISOLONE [Concomitant]
     Dosage: 1 MG/KG, QD
     Route: 065
     Dates: start: 20100404, end: 20100404
  16. METHYLPREDNISOLONE [Concomitant]
     Dosage: 0.5 MG/KG, QD
     Route: 065
     Dates: start: 20100405, end: 20100405
  17. PREDNISONE [Concomitant]
     Indication: APLASTIC ANAEMIA
     Dosage: UNK
     Route: 048
  18. CHLORPHENIRAMINE MALEATE [Concomitant]
     Indication: DRUG USE FOR UNKNOWN INDICATION
     Route: 065

REACTIONS (8)
  - HAEMATOMA [None]
  - NEUTROPENIA [None]
  - RENAL FAILURE ACUTE [None]
  - RESPIRATION ABNORMAL [None]
  - RESPIRATORY TRACT INFECTION [None]
  - SEPTIC SHOCK [None]
  - THROMBOCYTOPENIA [None]
  - TRANSAMINASES INCREASED [None]
